FAERS Safety Report 7051362-0 (Version None)
Quarter: 2010Q4

REPORT INFORMATION
  Report Type: 
  Country: None (occurrence: None)
  Receive Date: 20101018
  Receipt Date: 20101018
  Transmission Date: 20110411
  Serious: Yes (Life-Threatening, Disabling, Other)
  Sender: FDA-Public Use
  Company Number: None

PATIENT
  Sex: Female
  Weight: 57.6068 kg

DRUGS (1)
  1. TOPIRAMATE [Suspect]
     Indication: MIGRAINE
     Dosage: 300 -} INCREASED TO 600 2X DAILY
     Dates: start: 20070101, end: 20090901

REACTIONS (5)
  - ABDOMINAL PAIN [None]
  - BACK PAIN [None]
  - FATIGUE [None]
  - JOINT CREPITATION [None]
  - PHOTOPHOBIA [None]
